FAERS Safety Report 9643349 (Version 1)
Quarter: 2013Q4

REPORT INFORMATION
  Report Type: Spontaneous
  Country: GB (occurrence: GB)
  Receive Date: 20131024
  Receipt Date: 20131024
  Transmission Date: 20140711
  Serious: Yes (Other)
  Sender: FDA-Public Use
  Company Number: GB-ELI_LILLY_AND_COMPANY-GB201310004246

PATIENT
  Age: 16 Year
  Sex: Female

DRUGS (2)
  1. OLANZAPINE [Suspect]
     Indication: DEPRESSION
     Dosage: 1 DF, UNKNOWN
  2. OLANZAPINE [Suspect]
     Indication: PSYCHOTIC DISORDER

REACTIONS (3)
  - Convulsion [Unknown]
  - Hallucination, auditory [Unknown]
  - Drug ineffective [Unknown]
